FAERS Safety Report 15155097 (Version 1)
Quarter: 2018Q3

REPORT INFORMATION
  Report Type: Spontaneous
  Country: US (occurrence: US)
  Receive Date: 20180620
  Receipt Date: 20180620
  Transmission Date: 20181010
  Serious: No
  Sender: FDA-Public Use
  Company Number: None

PATIENT
  Age: 53 Year
  Sex: Female

DRUGS (1)
  1. AVONEX [Suspect]
     Active Substance: INTERFERON BETA-1A
     Indication: MULTIPLE SCLEROSIS
     Route: 065
     Dates: start: 20180124

REACTIONS (5)
  - Cough [None]
  - Somnolence [None]
  - Dizziness [None]
  - Headache [None]
  - Weight increased [None]

NARRATIVE: CASE EVENT DATE: 20180124
